FAERS Safety Report 24128559 (Version 1)
Quarter: 2024Q3

REPORT INFORMATION
  Report Type: Spontaneous
  Country: US (occurrence: None)
  Receive Date: 20240722
  Receipt Date: 20240722
  Transmission Date: 20241017
  Serious: No
  Sender: Public
  Company Number: None

PATIENT
  Age: 28 Year
  Sex: Female
  Weight: 72 kg

DRUGS (2)
  1. PAXLOVID [Suspect]
     Active Substance: NIRMATRELVIR\RITONAVIR
     Dates: start: 20240712, end: 20240716
  2. Amethyst birth control [Concomitant]

REACTIONS (10)
  - COVID-19 [None]
  - Pyrexia [None]
  - Sinus congestion [None]
  - Sinus operation [None]
  - Pain [None]
  - Ageusia [None]
  - Anosmia [None]
  - Cough [None]
  - Chest discomfort [None]
  - Nasal congestion [None]

NARRATIVE: CASE EVENT DATE: 20240720
